FAERS Safety Report 20200252 (Version 4)
Quarter: 2022Q3

REPORT INFORMATION
  Report Type: Spontaneous
  Country: US (occurrence: US)
  Receive Date: 20211217
  Receipt Date: 20220912
  Transmission Date: 20221027
  Serious: No
  Sender: FDA-Public Use
  Company Number: US-PFIZER INC-202101067228

PATIENT
  Age: 78 Year
  Sex: Female

DRUGS (2)
  1. GABAPENTIN [Suspect]
     Active Substance: GABAPENTIN
     Indication: Nerve injury
     Dosage: 900 MG, DAILY (300 IN THE MORNING AND 600 AT NIGHT)
  2. GABAPENTIN [Suspect]
     Active Substance: GABAPENTIN
     Indication: Carpal tunnel syndrome

REACTIONS (3)
  - Off label use [Unknown]
  - Drug ineffective for unapproved indication [Unknown]
  - Fatigue [Unknown]
